FAERS Safety Report 9321823 (Version 1)
Quarter: 2013Q2

REPORT INFORMATION
  Report Type: Spontaneous
  Country: US (occurrence: US)
  Receive Date: 20130531
  Receipt Date: 20130531
  Transmission Date: 20140414
  Serious: No
  Sender: FDA-Public Use
  Company Number: US-ABBOTT-13P-163-1038543-00

PATIENT
  Sex: Male
  Weight: 104.42 kg

DRUGS (4)
  1. MARINOL [Suspect]
     Indication: NAUSEA
     Dates: start: 201209, end: 2013
  2. MARINOL [Suspect]
     Indication: DIZZINESS
  3. OXYCODONE [Suspect]
     Indication: BACK PAIN
  4. OXYCODONE [Suspect]
     Indication: FIBROMYALGIA

REACTIONS (4)
  - Off label use [Unknown]
  - Incorrect dose administered [Recovered/Resolved]
  - Wrong technique in drug usage process [Recovered/Resolved]
  - Therapeutic response unexpected [Unknown]
